FAERS Safety Report 24279228 (Version 2)
Quarter: 2024Q3

REPORT INFORMATION
  Report Type: Spontaneous
  Country: FR (occurrence: FR)
  Receive Date: 20240903
  Receipt Date: 20240916
  Transmission Date: 20241016
  Serious: Yes (Other)
  Sender: MERCK
  Company Number: FR-009507513-2408FRA009711

PATIENT
  Age: 82 Year
  Sex: Male

DRUGS (2)
  1. PEMBROLIZUMAB [Suspect]
     Active Substance: PEMBROLIZUMAB
     Indication: Hodgkin^s disease
     Dosage: TWO CYCLES
  2. BRENTUXIMAB VEDOTIN [Suspect]
     Active Substance: BRENTUXIMAB VEDOTIN
     Indication: Hodgkin^s disease
     Dosage: FOUR CYCLES

REACTIONS (3)
  - Immune-mediated renal disorder [Unknown]
  - Immune-mediated pancreatitis [Unknown]
  - Product use in unapproved indication [Unknown]
